FAERS Safety Report 7652288-1 (Version None)
Quarter: 2011Q3

REPORT INFORMATION
  Report Type: 
  Country: None (occurrence: None)
  Receive Date: 20110803
  Receipt Date: 20110721
  Transmission Date: 20111222
  Serious: Yes (Other)
  Sender: FDA-Public Use
  Company Number: GB-BAYER-2011-065761

PATIENT
  Age: 57 Year
  Sex: Female

DRUGS (1)
  1. INTERFERON BETA-1B [Suspect]
     Indication: MULTIPLE SCLEROSIS
     Dosage: 250 ?G, QOD
     Route: 058
     Dates: start: 20060101

REACTIONS (7)
  - TREMOR [None]
  - BALANCE DISORDER [None]
  - INJECTION SITE REACTION [None]
  - NAUSEA [None]
  - FATIGUE [None]
  - INFLUENZA LIKE ILLNESS [None]
  - HEADACHE [None]
